FAERS Safety Report 4798084-4 (Version None)
Quarter: 2005Q4

REPORT INFORMATION
  Report Type: 
  Country: None (occurrence: None)
  Receive Date: 20051006
  Receipt Date: 20051006
  Transmission Date: 20060501
  Serious: Yes (Hospitalization)
  Sender: FDA-Public Use
  Company Number: None

PATIENT
  Age: 21 Year
  Sex: Female

DRUGS (1)
  1. DEPO-PROVERA [Suspect]
     Indication: CONTRACEPTION
     Dosage: 150MG, IM Q 3 MONTHS  APPROXIMATELY 1 MO. AGO
     Route: 030

REACTIONS (3)
  - CHEST PAIN [None]
  - DYSPNOEA [None]
  - OEDEMA PERIPHERAL [None]
